FAERS Safety Report 9938831 (Version 1)
Quarter: 2014Q1

REPORT INFORMATION
  Report Type: Spontaneous
  Country: US (occurrence: US)
  Receive Date: 20140303
  Receipt Date: 20140303
  Transmission Date: 20141002
  Serious: Yes (Other)
  Sender: FDA-Public Use
  Company Number: US-NOVOPROD-401419

PATIENT
  Age: 60 Year
  Sex: Female

DRUGS (1)
  1. NOVOLOG FLEXPEN [Suspect]
     Indication: TYPE 2 DIABETES MELLITUS
     Dosage: UNK
     Route: 058

REACTIONS (5)
  - Expired drug administered [Recovered/Resolved]
  - Blister [Recovered/Resolved]
  - Rash generalised [Recovered/Resolved]
  - Pruritus generalised [Recovered/Resolved]
  - Blood glucose increased [Recovered/Resolved]
